FAERS Safety Report 4989797-X (Version None)
Quarter: 2006Q2

REPORT INFORMATION
  Report Type: 
  Country: None (occurrence: None)
  Receive Date: 20060501
  Receipt Date: 20060419
  Transmission Date: 20061013
  Serious: Yes (Death)
  Sender: FDA-Public Use
  Company Number: 2006BI005973

PATIENT
  Sex: 0

DRUGS (3)
  1. ZEVALIN [Suspect]
     Dosage: 1X;IV
     Route: 042
     Dates: start: 20060213, end: 20060213
  2. RITUXIMAB [Concomitant]
  3. ANTIBIOTICS [Concomitant]

REACTIONS (1)
  - STEVENS-JOHNSON SYNDROME [None]
